FAERS Safety Report 9844650 (Version 1)
Quarter: 2014Q1

REPORT INFORMATION
  Report Type: Spontaneous
  Country: US (occurrence: US)
  Receive Date: 20140127
  Receipt Date: 20140127
  Transmission Date: 20141002
  Serious: Yes (Disabling)
  Sender: FDA-Public Use
  Company Number: US-ROCHE-1337164

PATIENT
  Sex: Male
  Weight: 76.27 kg

DRUGS (2)
  1. AVASTIN [Suspect]
     Indication: GASTRIC CANCER
     Route: 042
     Dates: start: 20140115
  2. XELODA [Suspect]
     Indication: GASTRIC CANCER
     Route: 048
     Dates: start: 20140115

REACTIONS (1)
  - Hypoaesthesia oral [Unknown]
